FAERS Safety Report 5541737-0 (Version None)
Quarter: 2007Q4

REPORT INFORMATION
  Report Type: 
  Country: None (occurrence: None)
  Receive Date: 20071129
  Receipt Date: 20070718
  Transmission Date: 20080405
  Serious: Yes (Other)
  Sender: FDA-Public Use
  Company Number: US200707004464

PATIENT
  Age: 28 Year
  Sex: Male
  Weight: 87.1 kg

DRUGS (4)
  1. ZYPREXA [Suspect]
     Indication: BIPOLAR DISORDER
     Dosage: 2.5 MG, 5 MG, 10 MG, 30 MG, 10 MG, 4/D
  2. ZYPREXA [Suspect]
     Indication: BIPOLAR DISORDER
     Dosage: 2.5 MG, 5 MG, 10 MG, 30 MG, 10 MG, 4/D
     Dates: start: 20061201
  3. GEODON [Concomitant]
  4. DEPAKOTE [Concomitant]

REACTIONS (7)
  - DEPERSONALISATION [None]
  - DRUG INEFFECTIVE [None]
  - FEELING ABNORMAL [None]
  - INCREASED APPETITE [None]
  - OVERDOSE [None]
  - SOMNOLENCE [None]
  - WEIGHT INCREASED [None]
